FAERS Safety Report 6977954-2 (Version None)
Quarter: 2010Q3

REPORT INFORMATION
  Report Type: 
  Country: None (occurrence: None)
  Receive Date: 20100913
  Receipt Date: 20100901
  Transmission Date: 20110219
  Serious: Yes (Hospitalization, Disabling, Other)
  Sender: FDA-Public Use
  Company Number: US-PFIZER INC-2010045891

PATIENT
  Sex: Female

DRUGS (13)
  1. CHANTIX [Suspect]
     Indication: SMOKING CESSATION THERAPY
     Dosage: 0.5 MG, UNK
     Dates: start: 20070101, end: 20090701
  2. SYNTHROID [Concomitant]
     Indication: HYPOTHYROIDISM
     Dosage: UNK
     Dates: start: 20030101, end: 20090101
  3. ALTACE [Concomitant]
     Indication: HYPERTENSION
     Dosage: UNK
     Dates: start: 20030101, end: 20080101
  4. MONTELUKAST SODIUM [Concomitant]
     Indication: ASTHMA
     Dosage: UNK
     Dates: start: 20030101, end: 20090101
  5. AVELOX [Concomitant]
     Indication: BRONCHITIS
     Dosage: UNK
     Dates: start: 20030101, end: 20080101
  6. LEVAQUIN [Concomitant]
     Indication: BRONCHITIS CHRONIC
     Dosage: UNK
     Dates: start: 20040101, end: 20090101
  7. ALPRAZOLAM [Concomitant]
     Indication: ANXIETY
     Dosage: UNK
     Dates: start: 20040101, end: 20080101
  8. METHYLPREDNISOLONE [Concomitant]
     Indication: DYSPNOEA
     Dosage: UNK
     Dates: start: 20050101
  9. ALBUTEROL [Concomitant]
     Indication: ASTHMA
     Dosage: UNK
     Dates: start: 20050101
  10. ZYRTEC [Concomitant]
     Indication: HYPERSENSITIVITY
     Dosage: UNK
     Dates: start: 20060101
  11. SPIRIVA [Concomitant]
     Indication: CHRONIC OBSTRUCTIVE PULMONARY DISEASE
     Dosage: UNK
     Dates: start: 20060101, end: 20080101
  12. DECADRON [Concomitant]
     Indication: INFLAMMATION
     Dosage: UNK
     Dates: start: 20040101
  13. TRIMETHOBENZAMIDE [Concomitant]
     Indication: HYPERSENSITIVITY
     Dosage: UNK
     Dates: start: 20040101, end: 20090101

REACTIONS (14)
  - ANXIETY [None]
  - BACK PAIN [None]
  - BREAST PAIN [None]
  - CARTILAGE INJURY [None]
  - DEPRESSION [None]
  - FALL [None]
  - LIGAMENT RUPTURE [None]
  - LOSS OF CONSCIOUSNESS [None]
  - MOOD ALTERED [None]
  - MUSCULOSKELETAL PAIN [None]
  - NECK PAIN [None]
  - PAIN IN EXTREMITY [None]
  - ROTATOR CUFF SYNDROME [None]
  - UPPER LIMB FRACTURE [None]
